FAERS Safety Report 7824638-4 (Version None)
Quarter: 2011Q4

REPORT INFORMATION
  Report Type: 
  Country: None (occurrence: None)
  Receive Date: 20111018
  Receipt Date: 20111018
  Transmission Date: 20120403
  Serious: Yes (Other)
  Sender: FDA-Public Use
  Company Number: None

PATIENT
  Age: 46 Year
  Sex: Female
  Weight: 136 kg

DRUGS (4)
  1. METOPROLOL TARTRATE [Concomitant]
  2. CITALOPRAM HYDROBROMIDE [Concomitant]
  3. LISINOPRIL AND HYDROCHLOROTHIAZIDE [Concomitant]
  4. J+J BABY LOTION SHEA AND COCOA BUTTER 27OZ [Suspect]
     Indication: DRY SKIN
     Dosage: TOPICAL
     Route: 061
     Dates: start: 20110921, end: 20110921

REACTIONS (3)
  - HYPERSENSITIVITY [None]
  - HEART RATE INCREASED [None]
  - CHEST DISCOMFORT [None]
